FAERS Safety Report 10184323 (Version 2)
Quarter: 2014Q2

REPORT INFORMATION
  Report Type: Spontaneous
  Country: US (occurrence: US)
  Receive Date: 20140520
  Receipt Date: 20140520
  Transmission Date: 20141212
  Serious: Yes (Hospitalization, Other)
  Sender: FDA-Public Use
  Company Number: US-RB-067439-14

PATIENT
  Age: 53 Year
  Sex: Female

DRUGS (2)
  1. SUBOXONE FILM [Suspect]
     Dosage: SUBOXONE FILM; CUTTING; PRESCRIBED 6 MG DAILY BUT SOMETIMES TAKING LESS 4 TO 6 MG DAILY
     Route: 060
     Dates: start: 201304, end: 20140107
  2. SUBOXONE FILM [Suspect]
     Indication: DRUG DEPENDENCE
     Dosage: SUBOXONE FILM
     Route: 060
     Dates: start: 201403, end: 201404

REACTIONS (19)
  - Wrong technique in drug usage process [Recovered/Resolved]
  - Intentional underdose [Recovered/Resolved]
  - Fall [Recovered/Resolved]
  - Spinal fracture [Recovered/Resolved]
  - Ligament sprain [Unknown]
  - Back pain [Recovered/Resolved]
  - Decreased appetite [Not Recovered/Not Resolved]
  - Depression [Not Recovered/Not Resolved]
  - Asthenia [Not Recovered/Not Resolved]
  - Apathy [Not Recovered/Not Resolved]
  - Activities of daily living impaired [Not Recovered/Not Resolved]
  - Pain in extremity [Not Recovered/Not Resolved]
  - Vomiting [Not Recovered/Not Resolved]
  - Nerve compression [Not Recovered/Not Resolved]
  - Therapeutic response changed [Not Recovered/Not Resolved]
  - Incontinence [Unknown]
  - Paranoia [Unknown]
  - Hallucination [Unknown]
  - Hallucination, auditory [Unknown]
